FAERS Safety Report 4687774-X (Version None)
Quarter: 2005Q2

REPORT INFORMATION
  Report Type: 
  Country: None (occurrence: None)
  Receive Date: 20050610
  Receipt Date: 20050310
  Transmission Date: 20051028
  Serious: Yes (Hospitalization, Disabling)
  Sender: FDA-Public Use
  Company Number: US-MERCK-0503USA02065

PATIENT
  Age: 55 Year
  Sex: Male
  Weight: 73 kg

DRUGS (12)
  1. VIOXX [Suspect]
     Indication: ARTHRALGIA
     Route: 048
     Dates: start: 20000323, end: 20040901
  2. VIOXX [Suspect]
     Route: 048
     Dates: start: 20000323, end: 20040901
  3. VIOXX [Suspect]
     Route: 048
     Dates: start: 20000323, end: 20040901
  4. VIOXX [Suspect]
     Route: 048
     Dates: start: 20000323, end: 20040901
  5. ZOLOFT [Concomitant]
     Indication: GENERALISED ANXIETY DISORDER
     Route: 065
     Dates: start: 20000101, end: 20050101
  6. DILACOR XR [Concomitant]
     Indication: HYPERTENSION
     Route: 065
  7. OXYCONTIN [Concomitant]
     Indication: BACK PAIN
     Route: 065
  8. REGLAN [Concomitant]
     Indication: GASTROOESOPHAGEAL REFLUX DISEASE
     Route: 065
  9. AMANTADINE HYDROCHLORIDE [Concomitant]
     Route: 065
  10. ZOLADEX [Concomitant]
     Indication: PROSTATE CANCER
     Route: 065
  11. LEVBID [Concomitant]
     Route: 065
  12. COENZYME Q10 [Concomitant]
     Route: 065

REACTIONS (11)
  - AMNESIA [None]
  - ATRIAL SEPTAL DEFECT [None]
  - BLOOD CHOLESTEROL INCREASED [None]
  - CEREBROVASCULAR ACCIDENT [None]
  - DISTURBANCE IN ATTENTION [None]
  - ELECTROCARDIOGRAM POOR R-WAVE PROGRESSION [None]
  - EMOTIONAL DISTRESS [None]
  - HYPERHOMOCYSTEINAEMIA [None]
  - INTERMITTENT CLAUDICATION [None]
  - INTERVERTEBRAL DISC DISORDER [None]
  - LEUKOCYTOSIS [None]
